FAERS Safety Report 4365805-4 (Version None)
Quarter: 2004Q2

REPORT INFORMATION
  Report Type: 
  Country: None (occurrence: None)
  Receive Date: 20040520
  Receipt Date: 20040507
  Transmission Date: 20050107
  Serious: Yes (Death)
  Sender: FDA-Public Use
  Company Number: FABR-10574

PATIENT
  Age: 52 Year
  Sex: Male

DRUGS (1)
  1. FABRAZYME [Suspect]
     Indication: FABRY'S DISEASE
     Dates: start: 20030821, end: 20040422

REACTIONS (4)
  - ANGIOKERATOMA [None]
  - CEREBROVASCULAR DISORDER [None]
  - SUBARACHNOID HAEMORRHAGE [None]
  - VASODILATATION [None]
